FAERS Safety Report 18517180 (Version 2)
Quarter: 2020Q4

REPORT INFORMATION
  Report Type: Report from Study
  Country: LB (occurrence: LB)
  Receive Date: 20201118
  Receipt Date: 20201120
  Transmission Date: 20210114
  Serious: Yes (Death)
  Sender: FDA-Public Use
  Company Number: NVSC2020LB307114

PATIENT
  Age: 67 Year
  Sex: Female
  Weight: 75 kg

DRUGS (1)
  1. BYL719 [Suspect]
     Active Substance: ALPELISIB
     Indication: CERVIX CARCINOMA
     Dosage: 300 MG, QD
     Route: 048
     Dates: start: 20200707, end: 20200727

REACTIONS (2)
  - Cervix cancer metastatic [Fatal]
  - Headache [Fatal]

NARRATIVE: CASE EVENT DATE: 20200707
